FAERS Safety Report 21017126 (Version 1)
Quarter: 2022Q2

REPORT INFORMATION
  Report Type: Spontaneous
  Country: US (occurrence: US)
  Receive Date: 20220628
  Receipt Date: 20220628
  Transmission Date: 20220720
  Serious: No
  Sender: FDA-Public Use
  Company Number: US-CELGENE-USA-20220203243

PATIENT
  Age: 81 Year
  Sex: Female

DRUGS (4)
  1. REVLIMID [Suspect]
     Active Substance: LENALIDOMIDE
     Indication: Diffuse large B-cell lymphoma
     Dosage: DOSE: 10 MG  FREQUENCY:  TAKE 1 CAPSULE BY MOUTH WHOLE WITH WATER AT THE SAME TIME EACH DAY ON DAYS
     Route: 048
     Dates: start: 202201
  2. REVLIMID [Suspect]
     Active Substance: LENALIDOMIDE
     Indication: Follicular lymphoma
  3. REVLIMID [Suspect]
     Active Substance: LENALIDOMIDE
     Indication: Off label use
  4. IMODIUM [Concomitant]
     Active Substance: LOPERAMIDE HYDROCHLORIDE
     Indication: Product used for unknown indication
     Dosage: FREQUENCY TEXT: NOT PROVIDED
     Route: 065

REACTIONS (2)
  - Platelet count decreased [Unknown]
  - Diarrhoea [Unknown]
